FAERS Safety Report 25336732 (Version 1)
Quarter: 2025Q2

REPORT INFORMATION
  Report Type: Spontaneous
  Country: US (occurrence: US)
  Receive Date: 20250520
  Receipt Date: 20250520
  Transmission Date: 20250717
  Serious: Yes (Hospitalization, Other)
  Sender: SANOFI AVENTIS
  Company Number: US-SA-2025SA143769

PATIENT
  Age: 72 Year
  Sex: Male

DRUGS (1)
  1. DUPIXENT [Suspect]
     Active Substance: DUPILUMAB
     Indication: Nasal polyps
     Dosage: 300 MG, QOW
     Route: 058

REACTIONS (6)
  - Fall [Unknown]
  - Lung neoplasm malignant [Unknown]
  - Hip arthroplasty [Unknown]
  - Nasal congestion [Unknown]
  - Chronic obstructive pulmonary disease [Unknown]
  - Peripheral artery aneurysm [Unknown]

NARRATIVE: CASE EVENT DATE: 20200101
